FAERS Safety Report 7067679-X (Version None)
Quarter: 2010Q4

REPORT INFORMATION
  Report Type: 
  Country: None (occurrence: None)
  Receive Date: 20101028
  Receipt Date: 20101019
  Transmission Date: 20110411
  Serious: Yes (Other)
  Sender: FDA-Public Use
  Company Number: NL-ASTRAZENECA-2010SE49437

PATIENT
  Age: 56 Year
  Sex: Female
  Weight: 94 kg

DRUGS (1)
  1. PULMICORT [Suspect]
     Route: 055
     Dates: start: 20000101

REACTIONS (1)
  - SKIN ATROPHY [None]
